FAERS Safety Report 8070034-7 (Version None)
Quarter: 2012Q1

REPORT INFORMATION
  Report Type: 
  Country: None (occurrence: None)
  Receive Date: 20120125
  Receipt Date: 20120120
  Transmission Date: 20120608
  Serious: Yes (Life-Threatening)
  Sender: FDA-Public Use
  Company Number: FR-SANOFI-AVENTIS-2012SA004244

PATIENT
  Age: 90 Year
  Sex: Female

DRUGS (5)
  1. LOVENOX [Suspect]
     Route: 058
     Dates: start: 20120102, end: 20120109
  2. OFLOXACIN [Suspect]
     Indication: URINARY TRACT INFECTION
     Route: 048
     Dates: start: 20111222, end: 20111227
  3. PANTOPRAZOLE [Suspect]
     Route: 048
     Dates: start: 20120102, end: 20120109
  4. CEFTRIAXONE [Suspect]
     Route: 058
     Dates: start: 20120102, end: 20120108
  5. ASPEGIC 325 [Suspect]
     Route: 048
     Dates: start: 20120102, end: 20120109

REACTIONS (2)
  - THROMBOCYTOPENIA [None]
  - RENAL FAILURE ACUTE [None]
